FAERS Safety Report 5030656-4 (Version None)
Quarter: 2006Q2

REPORT INFORMATION
  Report Type: 
  Country: None (occurrence: None)
  Receive Date: 20060620
  Receipt Date: 20060612
  Transmission Date: 20061013
  Serious: Yes (Hospitalization)
  Sender: FDA-Public Use
  Company Number: MX-MERCK-0606MEX00007

PATIENT
  Age: 75 Year
  Sex: Female
  Weight: 82 kg

DRUGS (7)
  1. FOSAMAX PLUS D [Suspect]
     Indication: BONE DISORDER
     Route: 048
     Dates: start: 20060301, end: 20060401
  2. [THERAPY UNSPECIFIED] [Concomitant]
     Indication: BONE DISORDER
     Route: 048
     Dates: start: 20060301, end: 20060401
  3. AMLODIPINE BESYLATE [Concomitant]
     Indication: HYPERTENSION
     Route: 048
     Dates: start: 20020101
  4. METOPROLOL [Concomitant]
     Indication: HYPERTENSION
     Route: 048
     Dates: start: 19990101
  5. DICLOFENAC [Concomitant]
     Indication: PAIN
     Route: 048
     Dates: start: 20050101, end: 20060301
  6. ACETAMINOPHEN [Concomitant]
     Indication: PAIN
     Route: 048
     Dates: start: 20050101, end: 20060301
  7. ASPIRIN [Concomitant]
     Indication: HEADACHE
     Route: 048

REACTIONS (5)
  - ANAEMIA [None]
  - GASTRIC ULCER [None]
  - GASTRITIS [None]
  - HAEMATEMESIS [None]
  - MELAENA [None]
